FAERS Safety Report 15582677 (Version 3)
Quarter: 2020Q4

REPORT INFORMATION
  Report Type: Report from Study
  Country: US (occurrence: US)
  Receive Date: 20181103
  Receipt Date: 20201022
  Transmission Date: 20210113
  Serious: No
  Sender: FDA-Public Use
  Company Number: PHHY2018US145034

PATIENT
  Age: 6 Year
  Sex: Male
  Weight: 28.12 kg

DRUGS (4)
  1. ILARIS [Suspect]
     Active Substance: CANAKINUMAB
     Indication: PYREXIA
     Dosage: 58 MG, Q4W
     Route: 058
     Dates: start: 20180225
  2. ILARIS [Suspect]
     Active Substance: CANAKINUMAB
     Dosage: 38 MG, Q4W
     Route: 058
  3. ILARIS [Suspect]
     Active Substance: CANAKINUMAB
     Route: 058
  4. ILARIS [Suspect]
     Active Substance: CANAKINUMAB
     Dosage: 83 MG, Q4W
     Route: 058

REACTIONS (2)
  - Pyrexia [Unknown]
  - Wrong dose [Unknown]

NARRATIVE: CASE EVENT DATE: 20180523
